FAERS Safety Report 7293367-0 (Version None)
Quarter: 2011Q1

REPORT INFORMATION
  Report Type: 
  Country: None (occurrence: None)
  Receive Date: 20110215
  Receipt Date: 20110211
  Transmission Date: 20110831
  Serious: Yes (Other)
  Sender: FDA-Public Use
  Company Number: VE-PFIZER INC-2011024971

PATIENT
  Age: 47 Year
  Sex: Male

DRUGS (2)
  1. CADUET [Suspect]
     Indication: HYPERTENSION
     Dosage: 5/40 MG, 1X/DAY
     Route: 048
     Dates: start: 20110101, end: 20110101
  2. AMLODIPINE [Concomitant]
     Indication: HYPERTENSION
     Dosage: 5 MG, 1X/DAY
     Route: 048

REACTIONS (4)
  - MUSCLE SPASMS [None]
  - NERVOUSNESS [None]
  - PERIPHERAL VASCULAR DISORDER [None]
  - DIZZINESS [None]
